FAERS Safety Report 18990052 (Version 2)
Quarter: 2021Q2

REPORT INFORMATION
  Report Type: Spontaneous
  Country: SI (occurrence: SI)
  Receive Date: 20210310
  Receipt Date: 20210423
  Transmission Date: 20210717
  Serious: Yes (Hospitalization, Other)
  Sender: FDA-Public Use
  Company Number: SI-SA-2021SA036093

PATIENT
  Age: 22 Year
  Sex: Female

DRUGS (3)
  1. LEMTRADA [Suspect]
     Active Substance: ALEMTUZUMAB
     Indication: AUTOIMMUNE THYROIDITIS
  2. LEMTRADA [Suspect]
     Active Substance: ALEMTUZUMAB
     Indication: DERMATITIS ATOPIC
     Dosage: 12 MG
     Dates: start: 201812
  3. LEMTRADA [Suspect]
     Active Substance: ALEMTUZUMAB
     Indication: RELAPSING-REMITTING MULTIPLE SCLEROSIS
     Dosage: 12 MG
     Dates: start: 201902

REACTIONS (9)
  - Hepatosplenomegaly [Unknown]
  - Interleukin-2 receptor increased [Unknown]
  - Serum ferritin increased [Unknown]
  - Blood triglycerides increased [Unknown]
  - Natural killer cell count decreased [Unknown]
  - T-lymphocyte count decreased [Unknown]
  - Haemophagocytic lymphohistiocytosis [Unknown]
  - Pyrexia [Not Recovered/Not Resolved]
  - Product use in unapproved indication [Unknown]
